FAERS Safety Report 8181128-X (Version None)
Quarter: 2012Q1

REPORT INFORMATION
  Report Type: 
  Country: None (occurrence: None)
  Receive Date: 20120302
  Receipt Date: 20120301
  Transmission Date: 20120608
  Serious: Yes (Hospitalization)
  Sender: FDA-Public Use
  Company Number: US-GLAXOSMITHKLINE-A0897507A

PATIENT
  Age: 66 Year
  Sex: Female

DRUGS (1)
  1. AVANDIA [Suspect]
     Indication: DIABETES MELLITUS
     Route: 048

REACTIONS (13)
  - ATRIAL FIBRILLATION [None]
  - ASCITES [None]
  - MYOCARDIAL INFARCTION [None]
  - GENERAL PHYSICAL CONDITION ABNORMAL [None]
  - HAEMORRHAGIC STROKE [None]
  - OESOPHAGITIS [None]
  - PULMONARY HYPERTENSION [None]
  - CELLULITIS [None]
  - TRICUSPID VALVE INCOMPETENCE [None]
  - ECONOMIC PROBLEM [None]
  - CARDIAC FAILURE CONGESTIVE [None]
  - CARDIAC ARREST [None]
  - PAIN [None]
